FAERS Safety Report 10736612 (Version 1)
Quarter: 2015Q1

REPORT INFORMATION
  Report Type: Spontaneous
  Country: US (occurrence: None)
  Receive Date: 20150123
  Receipt Date: 20150123
  Transmission Date: 20150721
  Serious: No
  Sender: FDA-Public Use
  Company Number: None

PATIENT
  Age: 75 Year
  Sex: Male
  Weight: 97 kg

DRUGS (1)
  1. INTRON A [Suspect]
     Active Substance: INTERFERON ALFA-2B
     Dosage: 89.6 MILLIUNIT
     Dates: end: 20120713

REACTIONS (11)
  - Asthenia [None]
  - Vomiting [None]
  - Alanine aminotransferase increased [None]
  - Aspartate aminotransferase increased [None]
  - Blood bilirubin increased [None]
  - Hypokalaemia [None]
  - Dehydration [None]
  - Chest pain [None]
  - Platelet count decreased [None]
  - White blood cell count decreased [None]
  - Hyperglycaemia [None]

NARRATIVE: CASE EVENT DATE: 20150115
